FAERS Safety Report 9204855 (Version 1)
Quarter: 2013Q2

REPORT INFORMATION
  Report Type: Spontaneous
  Country: US (occurrence: CH)
  Receive Date: 20130402
  Receipt Date: 20130402
  Transmission Date: 20140414
  Serious: Yes (Death)
  Sender: FDA-Public Use
  Company Number: US-009507513-1110USA04527

PATIENT
  Age: 48 Year
  Sex: Male

DRUGS (4)
  1. ISENTRESS [Suspect]
     Indication: HIV INFECTION
     Route: 048
     Dates: start: 20110901, end: 20110920
  2. TRUVADA [Suspect]
     Indication: HIV INFECTION
     Dates: start: 20110901, end: 20110920
  3. ATRIPLA [Suspect]
     Indication: HIV INFECTION
     Route: 048
     Dates: start: 20110804, end: 20110810
  4. COTRIM [Concomitant]
     Indication: ANTIFUNGAL PROPHYLAXIS
     Dosage: 1 DF, QD
     Route: 048
     Dates: start: 20110804, end: 20110817

REACTIONS (6)
  - Completed suicide [Fatal]
  - Anxiety [Fatal]
  - Paranoia [Fatal]
  - Nightmare [Fatal]
  - Insomnia [Fatal]
  - Depression [Fatal]
